FAERS Safety Report 6368700-4 (Version None)
Quarter: 2009Q3

REPORT INFORMATION
  Report Type: 
  Country: None (occurrence: None)
  Receive Date: 20090917
  Receipt Date: 20090917
  Transmission Date: 20100115
  Serious: No
  Sender: FDA-Public Use
  Company Number: None

PATIENT
  Age: 49 Year
  Sex: Male
  Weight: 67.1324 kg

DRUGS (1)
  1. GEMCITABINE [Suspect]
     Indication: BLADDER CANCER
     Dosage: 1000 MG/M2 3 WKS ON 1 WK OFF IV
     Route: 042
     Dates: start: 20090414, end: 20090908

REACTIONS (1)
  - PLATELET COUNT ABNORMAL [None]
